FAERS Safety Report 14393120 (Version 1)
Quarter: 2018Q1

REPORT INFORMATION
  Report Type: Spontaneous
  Country: US (occurrence: US)
  Receive Date: 20180113
  Receipt Date: 20180113
  Transmission Date: 20180509
  Serious: No
  Sender: FDA-Public Use
  Company Number: None

PATIENT
  Age: 33 Year
  Sex: Female
  Weight: 69 kg

DRUGS (3)
  1. NUVARING [Suspect]
     Active Substance: ETHINYL ESTRADIOL\ETONOGESTREL
     Indication: PROPHYLAXIS
     Dates: start: 20171207
  2. NUVARING [Suspect]
     Active Substance: ETHINYL ESTRADIOL\ETONOGESTREL
     Indication: POLYCYSTIC OVARIES
     Dates: start: 20171207
  3. NUVARING [Suspect]
     Active Substance: ETHINYL ESTRADIOL\ETONOGESTREL
     Indication: CONTRACEPTION
     Dates: start: 20171207

REACTIONS (5)
  - Irritability [None]
  - Anxiety [None]
  - Emotional disorder [None]
  - Mood swings [None]
  - Crying [None]

NARRATIVE: CASE EVENT DATE: 20171211
